FAERS Safety Report 20207095 (Version 1)
Quarter: 2021Q4

REPORT INFORMATION
  Report Type: Spontaneous
  Country: US (occurrence: None)
  Receive Date: 20211218
  Receipt Date: 20211218
  Transmission Date: 20220303
  Serious: Yes (Hospitalization)
  Sender: FDA-Public Use
  Company Number: None

PATIENT
  Sex: Female
  Weight: 65.77 kg

DRUGS (1)
  1. PEMBROLIZUMAB [Suspect]
     Active Substance: PEMBROLIZUMAB
     Indication: Product used for unknown indication
     Dates: end: 20211123

REACTIONS (7)
  - Cough [None]
  - Dyspnoea [None]
  - Pyrexia [None]
  - Productive cough [None]
  - Chills [None]
  - Asthenia [None]
  - Sputum abnormal [None]

NARRATIVE: CASE EVENT DATE: 20211212
